FAERS Safety Report 16349638 (Version 3)
Quarter: 2019Q4

REPORT INFORMATION
  Report Type: Spontaneous
  Country: US (occurrence: US)
  Receive Date: 20190523
  Receipt Date: 20191024
  Transmission Date: 20200122
  Serious: Yes (Hospitalization, Other)
  Sender: FDA-Public Use
  Company Number: US-PFIZER INC-2019205164

PATIENT
  Age: 72 Year
  Sex: Female

DRUGS (29)
  1. CALCIUM + VITAMIN D3 [Concomitant]
     Active Substance: CALCIUM\CHOLECALCIFEROL
     Dosage: CALCIUM 2000MG PLUS VITAMIN D3 1000 IU, 1X/DAY
  2. MULTIVITAMIN PLUS OMEGA-3 [Concomitant]
     Dosage: 1 DF, 1X/DAY, (ONE CHEWABLE ONCE PER DAY)
  3. FOLIC ACID. [Concomitant]
     Active Substance: FOLIC ACID
     Dosage: 3 MG, DAILY
     Route: 048
     Dates: start: 20190126
  4. METFORMIN [Concomitant]
     Active Substance: METFORMIN HYDROCHLORIDE
     Dosage: 1000 MG, 2X/DAY, (TAKE 2 TABLETS BY MOUTH TWICE A DAY)
     Route: 048
     Dates: start: 20190326
  5. PANTOPRAZOLE [Concomitant]
     Active Substance: PANTOPRAZOLE
     Dosage: 40 MG, 2X/DAY, (1 TAB(S) ORALLY 2 TIMES A DAY X 30 DAYS)
     Route: 048
     Dates: start: 20190405
  6. PROBIOTICS [Concomitant]
     Active Substance: PROBIOTICS NOS
     Dosage: 1 DF, 1X/DAY
  7. VITAMIN D3 [Concomitant]
     Active Substance: CHOLECALCIFEROL
     Dosage: 5000 IU, 1X/DAY
  8. VITAMIN B12 [Concomitant]
     Active Substance: CYANOCOBALAMIN
     Dosage: UNK UNK, MONTHLY
  9. BIOTIN [Concomitant]
     Active Substance: BIOTIN
     Dosage: 5000 UNK, UNK (UNIT: MCG)
     Route: 048
  10. CINNAMON. [Concomitant]
     Active Substance: CINNAMON
     Dosage: 2000 MG, 2X/DAY
  11. PROCRIT [Concomitant]
     Active Substance: ERYTHROPOIETIN
     Indication: HAEMOGLOBIN DECREASED
     Dosage: UNK, MONTHLY
  12. METFORMIN [Concomitant]
     Active Substance: METFORMIN HYDROCHLORIDE
     Dosage: 1500 MG, UNK
     Route: 048
  13. DICLOFENAC [Suspect]
     Active Substance: DICLOFENAC
     Indication: PAIN
     Dosage: 50 MG, 1X/DAY, (50MG ONCE PER DAY FROM TWO WEEKS )
     Route: 048
     Dates: start: 201903, end: 20190322
  14. TRIPLE STRENGTH NONI SUPREME WITH ACAI [Suspect]
     Active Substance: DIETARY SUPPLEMENT\HERBALS
     Indication: NUTRITIONAL SUPPLEMENTATION
     Dosage: UNK, 1X/DAY (ONE TO ONE AND ONE HALF CAPSULES)
     Route: 048
     Dates: start: 2016, end: 201904
  15. EOVIST [Concomitant]
     Active Substance: GADOXETATE DISODIUM
     Dosage: 10 UNK, UNK
     Route: 042
  16. GINKGO SMART MAXIMUM FOCUS + MEMORY [Suspect]
     Active Substance: GINKGO
     Indication: NUTRITIONAL SUPPLEMENTATION
     Dosage: 1 DF, 1X/DAY, (ONE CAPSULE ONCE PER DAY FOR ABOUT TWO TO THREE WEEKS )
     Route: 048
     Dates: start: 201903, end: 201904
  17. TIZANIDINE HCL [Suspect]
     Active Substance: TIZANIDINE HYDROCHLORIDE
     Dosage: 2 MG, AS NEEDED [1 ORAL TABLET EVERY 6 TO 8 HOURS AS NEEDED]
     Route: 048
     Dates: start: 2019, end: 2019
  18. OMEGA 3-6-9 [Concomitant]
     Active Substance: FISH OIL
     Dosage: UNK, 1X/DAY
  19. TRAMADOL. [Concomitant]
     Active Substance: TRAMADOL
     Dosage: 50 MG, AS NEEDED
  20. TIZANIDINE HCL [Suspect]
     Active Substance: TIZANIDINE HYDROCHLORIDE
     Dosage: 2 MG, UNK (2MG ONCE EVERY SIX TO EIGHT HOURS)
     Route: 048
     Dates: start: 201903, end: 20190322
  21. FOLIC ACID. [Concomitant]
     Active Substance: FOLIC ACID
     Dosage: 1 MG, UNK
     Route: 048
  22. ATORVASTATIN [Concomitant]
     Active Substance: ATORVASTATIN
     Dosage: 40 MG, DAILY
     Route: 048
     Dates: start: 20190121
  23. OMNIPAQUE [Concomitant]
     Active Substance: IOHEXOL
     Dosage: 100 ML, UNK (350MG/ML)
  24. BASAGLAR [Concomitant]
     Active Substance: INSULIN GLARGINE
     Dosage: 50 IU, 2X/DAY
     Route: 058
     Dates: start: 20190326
  25. LYRICA [Suspect]
     Active Substance: PREGABALIN
     Dosage: 25 MG, 3X/DAY, (ONE THREE TIMES PER DAY )
     Route: 048
     Dates: start: 201903, end: 20190322
  26. BIOTIN [Concomitant]
     Active Substance: BIOTIN
     Dosage: 10000 UG, 1X/DAY [10,000MCG ONCE PER DAY]
  27. IRON FERROUS SULFATE [Concomitant]
     Active Substance: FERROUS SULFATE
     Dosage: UNK, 1X/DAY, (IRON 65MG/325MG FERROUS SULFATE)
  28. GARLIC [ALLIUM SATIVUM] [Concomitant]
     Active Substance: GARLIC
     Dosage: 2000 MG, 1X/DAY
  29. RITUXAN [Concomitant]
     Active Substance: RITUXIMAB
     Dosage: UNK [INFUSIONS EVERY FOUR TO SIX MONTHS FOR THREE HOURS EACH TIME]

REACTIONS (9)
  - Abdominal tenderness [Unknown]
  - Abdominal pain [Unknown]
  - Intervertebral disc protrusion [Unknown]
  - Liver function test increased [Unknown]
  - Back pain [Unknown]
  - Breast pain [Recovered/Resolved]
  - Hepatomegaly [Unknown]
  - Splenomegaly [Unknown]
  - Hepatic enzyme increased [Recovering/Resolving]

NARRATIVE: CASE EVENT DATE: 2019
